FAERS Safety Report 19134757 (Version 8)
Quarter: 2021Q3

REPORT INFORMATION
  Report Type: Report from Study
  Country: GB (occurrence: GB)
  Receive Date: 20210414
  Receipt Date: 20210916
  Transmission Date: 20211014
  Serious: Yes (Hospitalization, Other)
  Sender: FDA-Public Use
  Company Number: GB-MYLANLABS-2019M1068382

PATIENT
  Age: 51 Year
  Sex: Female

DRUGS (126)
  1. TRASTUZUMAB. [Suspect]
     Active Substance: TRASTUZUMAB
     Indication: BREAST CANCER METASTATIC
     Dosage: 600 MG, EVERY 3 WEEKS (DOSE FORM: 230; CUMULATIVE DOSE TO FIRST REACTION: 4544.048 MG)
     Route: 042
     Dates: start: 20150924, end: 20150924
  2. DOCETAXEL. [Suspect]
     Active Substance: DOCETAXEL
     Indication: BREAST CANCER METASTATIC
     Dosage: 132 MILLIGRAM, Q3W (CUMULATIVE DOSE TO FIRST REACTION: 993.4048 MG)
     Route: 042
     Dates: start: 20150925, end: 20151016
  3. CARBOPLATIN. [Suspect]
     Active Substance: CARBOPLATIN
     Indication: BREAST CANCER METASTATIC
     Dosage: 240 MG, WEEKLY (EVERY 7 DAYS)
     Route: 042
     Dates: start: 20181219, end: 20190117
  4. AMOXICILLIN. [Concomitant]
     Active Substance: AMOXICILLIN
     Dosage: 500 MG, TID (DOSE FORM: 245)
     Route: 048
     Dates: start: 20160330
  5. AMOXICILLIN. [Concomitant]
     Active Substance: AMOXICILLIN
     Dosage: 1500 MG, QD (DOSE FORM: 245)
     Route: 048
     Dates: start: 20160330, end: 20160406
  6. AMITRIPTYLINE [Concomitant]
     Active Substance: AMITRIPTYLINE
     Indication: NEUROPATHY PERIPHERAL
     Dosage: 30 MG, EVERY 1 DAYS (DOSE FORM: 245)
     Route: 048
     Dates: start: 201608
  7. HUMALOG [Concomitant]
     Active Substance: INSULIN LISPRO
     Dosage: 16 DF EVERY 0.33 DAY
     Route: 058
  8. LANSOPRAZOLE. [Concomitant]
     Active Substance: LANSOPRAZOLE
     Indication: PRODUCT USED FOR UNKNOWN INDICATION
     Dosage: 30 MILLIGRAM, QD (DOSE FORM: 245)
     Route: 048
  9. BUDESONIDE. [Concomitant]
     Active Substance: BUDESONIDE
     Indication: PRODUCT USED FOR UNKNOWN INDICATION
     Dosage: 9 MILLIGRAM, QD
     Route: 048
     Dates: start: 20180220
  10. HYOSCINE N?BUTYLBROMIDE [Concomitant]
     Active Substance: BUTYLSCOPOLAMINE
     Dosage: 20 MG PER 0.33 DAY
     Route: 048
     Dates: start: 20171219, end: 2018
  11. MACROGOL [Concomitant]
     Active Substance: POLYETHYLENE GLYCOLS
     Dosage: UNK
  12. TRASTUZUMAB. [Suspect]
     Active Substance: TRASTUZUMAB
     Dosage: 260 MILLIGRAM, Q3W, TARGETED THERAPY
     Route: 042
     Dates: start: 20150924, end: 20150924
  13. TRASTUZUMAB. [Suspect]
     Active Substance: TRASTUZUMAB
     Dosage: 600 MILLIGRAM, Q3W (DOSE FORM: 120)
     Route: 042
     Dates: start: 20150924, end: 20150924
  14. CAPECITABINE. [Suspect]
     Active Substance: CAPECITABINE
     Indication: BREAST CANCER METASTATIC
     Dosage: 3500 MILLIGRAM (DOSE FORM: 82)
     Route: 048
     Dates: start: 20170905, end: 20171128
  15. PERTUZUMAB. [Suspect]
     Active Substance: PERTUZUMAB
     Indication: BREAST CANCER METASTATIC
     Dosage: 840 MILLIGRAM, Q3W (DOSE FORM: 120)
     Route: 042
     Dates: start: 20150924, end: 20150924
  16. PERTUZUMAB. [Suspect]
     Active Substance: PERTUZUMAB
     Dosage: 840 DOSAGE FORM, TIW
     Route: 042
     Dates: start: 20150924, end: 20150924
  17. PERTUZUMAB. [Suspect]
     Active Substance: PERTUZUMAB
     Dosage: 420 MILLIGRAM, Q3W
     Route: 042
     Dates: start: 20151016, end: 20170324
  18. TRASTUZUMAB EMTANSINE [Suspect]
     Active Substance: ADO-TRASTUZUMAB EMTANSINE
     Dosage: 260 MG, 3/WEEK (CV) (DOSAGE FORM: 293)
     Route: 042
     Dates: start: 20150924, end: 20150924
  19. TRASTUZUMAB EMTANSINE [Suspect]
     Active Substance: ADO-TRASTUZUMAB EMTANSINE
     Dosage: 450 MG, EVERY 3 WEEKS, TARGETED THERAPY (DOSE FORM: 293)
     Route: 042
     Dates: start: 20151016
  20. ATEZOLIZUMAB. [Suspect]
     Active Substance: ATEZOLIZUMAB
     Dosage: 1200 MILLIGRAM, TID (TARGETED THERAPY); (PHARMACEUTICAL DOSE FORM: 120)
     Route: 042
     Dates: start: 20170510, end: 20170628
  21. CARBOPLATIN. [Suspect]
     Active Substance: CARBOPLATIN
     Dosage: 240 MG, WEEKLY (DOSE FORM: 120)
     Route: 042
     Dates: start: 20181219, end: 20190117
  22. AMOXICILLIN. [Concomitant]
     Active Substance: AMOXICILLIN
     Indication: UPPER RESPIRATORY TRACT INFECTION
     Dosage: 1500 MILLIGRAM, QD (500 MG, 0.33 DAY)
     Route: 048
     Dates: start: 20160330, end: 20160406
  23. CITALOPRAM [Concomitant]
     Active Substance: CITALOPRAM HYDROBROMIDE
     Indication: PRODUCT USED FOR UNKNOWN INDICATION
     Dosage: 20 MILLIGRAM, QD
     Route: 048
  24. ZOPICLONE [Concomitant]
     Active Substance: ZOPICLONE
     Dosage: UNK
  25. ZOPICLONE [Concomitant]
     Active Substance: ZOPICLONE
     Dosage: 3.75 MILLIGRAM, QD (DOSE FORM: 245, CUMULATIVE DOSE: 1983.5938 MG)
     Route: 048
     Dates: start: 20170812, end: 20170822
  26. METFORMIN [Concomitant]
     Active Substance: METFORMIN HYDROCHLORIDE
     Dosage: 500 MILLIGRAM, QD
     Route: 048
  27. METFORMIN [Concomitant]
     Active Substance: METFORMIN HYDROCHLORIDE
     Dosage: 500 MILLIGRAM, BID (DOSE FORM: 245)
     Route: 048
  28. DOCUSATE SODIUM. [Concomitant]
     Active Substance: DOCUSATE SODIUM
     Dosage: UNK
  29. DOMPERIDONE [Concomitant]
     Active Substance: DOMPERIDONE
     Dosage: UNK
  30. HYOSCINE N?BUTYLBROMIDE [Concomitant]
     Active Substance: BUTYLSCOPOLAMINE
     Dosage: 20 MILLIGRAM, TID (DOSE FORM: 245)
     Route: 048
     Dates: start: 20171219, end: 2018
  31. SENNOSIDE B [Concomitant]
     Active Substance: SENNOSIDE B
     Dosage: UNK
  32. TRASTUZUMAB. [Suspect]
     Active Substance: TRASTUZUMAB
     Dosage: 450 MG, EVERY 2 WEEKS (DOSE FORM: 230; CUMULATIVE DOSE TO FIRST REACTION: 4404.9106 MG)
     Route: 042
     Dates: start: 20151016
  33. DOCETAXEL. [Suspect]
     Active Substance: DOCETAXEL
     Dosage: 108 MG EVERY 3 WEEKS (CUMULATIVE DOSE TO FIRST REACTION: 704.7857 MG)
     Route: 042
     Dates: start: 20151016
  34. PERTUZUMAB. [Suspect]
     Active Substance: PERTUZUMAB
     Dosage: 840 MG, QD (1/DAY) (DOSE FORM: 230)
     Route: 042
     Dates: start: 20150924, end: 20150924
  35. PERTUZUMAB. [Suspect]
     Active Substance: PERTUZUMAB
     Dosage: 420 MG, TIW (DOSE FORM: 230; CUMULATIVE DOSE TO FIRST REACTION: 2740.8333 MG)
     Route: 042
     Dates: start: 20151016, end: 20170324
  36. PERTUZUMAB. [Suspect]
     Active Substance: PERTUZUMAB
     Dosage: 420 MG, Q3W (DOSE FORM:INFUSION, SOLUTION)
     Route: 042
     Dates: start: 20151016, end: 20170324
  37. AMOXICILLIN. [Concomitant]
     Active Substance: AMOXICILLIN
     Dosage: 500 MILLIGRAM, QD
     Route: 048
     Dates: start: 20160330, end: 20160406
  38. CITALOPRAM [Concomitant]
     Active Substance: CITALOPRAM HYDROBROMIDE
     Dosage: 20 MILLIGRAM, QD (DOSE FORM: 245)
     Route: 048
  39. AMITRIPTYLINE [Concomitant]
     Active Substance: AMITRIPTYLINE
     Dosage: 10 MG EVERY 0.33 DAY (DOSE FORM: 245)
     Route: 048
     Dates: start: 201608
  40. BUDESONIDE. [Concomitant]
     Active Substance: BUDESONIDE
     Dosage: 9 MILLIGRAM, QD (DOSE FORM: 5)
     Route: 048
     Dates: start: 20180220
  41. GLYCEROL [Concomitant]
     Active Substance: GLYCERIN
     Indication: PRODUCT USED FOR UNKNOWN INDICATION
     Dosage: 4 GRAM
     Route: 048
     Dates: start: 20180511, end: 201805
  42. CAPECITABINE. [Suspect]
     Active Substance: CAPECITABINE
     Dosage: 1500 MILLIGRAM (DOSE FORM: 82)
     Route: 048
     Dates: start: 20171128, end: 20171219
  43. CAPECITABINE. [Suspect]
     Active Substance: CAPECITABINE
     Dosage: 1500 MG (MANUFACTURER UNKNOWN, 1500 MG AND 1000 MG)
     Route: 048
     Dates: start: 20171128
  44. CAPECITABINE. [Suspect]
     Active Substance: CAPECITABINE
     Dosage: 3500 MG, TABLET (DOSE FORM: 245)
     Route: 048
     Dates: start: 20170905, end: 20171128
  45. PERTUZUMAB. [Suspect]
     Active Substance: PERTUZUMAB
     Dosage: 420 MG, EVERY 3 WEEKS (DOSE FORM: 230)
     Route: 042
     Dates: start: 20170324
  46. PERTUZUMAB. [Suspect]
     Active Substance: PERTUZUMAB
     Dosage: 840 MG EVERY 3 WEEKS (PHARMACEUTICAL DOSE FORM: INFUSION, SOLUTION)
     Route: 042
     Dates: start: 20150924, end: 20150924
  47. PERTUZUMAB. [Suspect]
     Active Substance: PERTUZUMAB
     Dosage: 420 MG, Q3W (DOSE FORM:INFUSION, SOLUTION)
     Route: 042
     Dates: start: 20170324, end: 20170324
  48. PERTUZUMAB. [Suspect]
     Active Substance: PERTUZUMAB
     Dosage: 840 MILLIGRAM, Q3W
     Route: 042
     Dates: start: 20150924, end: 20150924
  49. TRASTUZUMAB EMTANSINE [Suspect]
     Active Substance: ADO-TRASTUZUMAB EMTANSINE
     Dosage: 600 MILLIGRAM, Q3W
     Route: 042
  50. TRASTUZUMAB EMTANSINE [Suspect]
     Active Substance: ADO-TRASTUZUMAB EMTANSINE
     Dosage: 450 MG, Q3W (TARGETED THERAPY)
     Route: 042
     Dates: start: 20151016
  51. ATEZOLIZUMAB. [Suspect]
     Active Substance: ATEZOLIZUMAB
     Indication: BREAST CANCER METASTATIC
     Dosage: DRUG CUMULATIVE DOSAGE NUMBER 3600 MG
     Route: 042
  52. ATEZOLIZUMAB. [Suspect]
     Active Substance: ATEZOLIZUMAB
     Dosage: DOSE FORM: 120
  53. ERIBULIN [Suspect]
     Active Substance: ERIBULIN
     Indication: BREAST CANCER METASTATIC
     Dosage: 2.5 MG, UNKNOWN (DOSE FORM: 120)
     Route: 042
     Dates: start: 20180822, end: 20181010
  54. NERATINIB [Suspect]
     Active Substance: NERATINIB
     Indication: HER2 POSITIVE BREAST CANCER
     Dosage: UNK
  55. LEVEMIR [Concomitant]
     Active Substance: INSULIN DETEMIR
     Indication: PRODUCT USED FOR UNKNOWN INDICATION
     Dosage: 30 MILLIGRAM, QD (DOSE FORM: 245)
     Route: 058
  56. ZOPICLONE [Concomitant]
     Active Substance: ZOPICLONE
     Indication: INSOMNIA
     Dosage: 3.75 MILLIGRAM, QD
     Route: 048
     Dates: start: 20170812, end: 20170822
  57. METFORMIN [Concomitant]
     Active Substance: METFORMIN HYDROCHLORIDE
     Indication: PRODUCT USED FOR UNKNOWN INDICATION
     Dosage: 1000 MG, EVERY 1 DAY (DOSE FORM: 245)
     Route: 048
  58. METFORMIN [Concomitant]
     Active Substance: METFORMIN HYDROCHLORIDE
     Dosage: 500 MILLIGRAM
     Route: 048
  59. HYOSCINE N?BUTYLBROMIDE [Concomitant]
     Active Substance: BUTYLSCOPOLAMINE
     Indication: PRODUCT USED FOR UNKNOWN INDICATION
     Dosage: 20 MILLIGRAM, QD
     Route: 048
     Dates: start: 20171219, end: 2018
  60. RANITIDINE. [Concomitant]
     Active Substance: RANITIDINE
     Dosage: UNK
  61. CAPECITABINE. [Suspect]
     Active Substance: CAPECITABINE
     Dosage: 1000 MG (DOSE FORM: 245)
     Route: 048
     Dates: start: 20171128, end: 20171219
  62. CAPECITABINE. [Suspect]
     Active Substance: CAPECITABINE
     Dosage: 1500 MILLIGRAM (DOSE FORM: 245)
     Route: 048
     Dates: start: 20171128, end: 20171219
  63. DOCETAXEL. [Suspect]
     Active Substance: DOCETAXEL
     Indication: HER2 POSITIVE BREAST CANCER
     Dosage: 108 MILLIGRAM, Q3W (DOSE FORM: 120)
     Route: 042
     Dates: start: 20151016, end: 20160108
  64. PERTUZUMAB. [Suspect]
     Active Substance: PERTUZUMAB
     Dosage: 420 MG,EVERY 3 WEEKS (DOSE FORM: 230)
     Route: 042
     Dates: start: 20151016, end: 20170324
  65. TRASTUZUMAB EMTANSINE [Suspect]
     Active Substance: ADO-TRASTUZUMAB EMTANSINE
     Dosage: 260 MG, EVERY 3 WEEKS, TARGETED THERAPY (DOSE FORM: 230)
     Route: 042
     Dates: start: 20150924, end: 20150924
  66. ATEZOLIZUMAB. [Suspect]
     Active Substance: ATEZOLIZUMAB
     Indication: HER2 POSITIVE BREAST CANCER
     Dosage: 1200 MILLIGRAM, Q3W (TARGETED THERAPY)
     Route: 042
     Dates: start: 20170510, end: 20170628
  67. CARBOPLATIN. [Suspect]
     Active Substance: CARBOPLATIN
     Indication: HER2 POSITIVE BREAST CANCER
     Dosage: UNK
  68. NERATINIB [Suspect]
     Active Substance: NERATINIB
     Dosage: 240 MG, QD (1/DAY), MANUFACTURER UNKNOWN
     Route: 048
     Dates: start: 20180220, end: 20180717
  69. AMOXICILLIN. [Concomitant]
     Active Substance: AMOXICILLIN
     Dosage: 1500 MILLIGRAM, QD (500 MG, 0.33 DAY)
     Route: 048
     Dates: start: 20160406
  70. HUMALOG [Concomitant]
     Active Substance: INSULIN LISPRO
     Dosage: 0.33 DAY, (16 UNIT)
     Route: 058
  71. HUMALOG [Concomitant]
     Active Substance: INSULIN LISPRO
     Dosage: 16 INTERNATIONAL UNIT, 0.33 DAY
     Route: 058
  72. HALOPERIDOL. [Concomitant]
     Active Substance: HALOPERIDOL
     Dosage: UNK
  73. TRASTUZUMAB. [Suspect]
     Active Substance: TRASTUZUMAB
     Dosage: 600 MILLIGRAM, QD
     Route: 042
     Dates: start: 20150924, end: 20150924
  74. TRASTUZUMAB. [Suspect]
     Active Substance: TRASTUZUMAB
     Dosage: 450 MILLIGRAM, EVERY 3 WEEKS (DOSE FORM:230; CUMULATIVE DOSE: 2936.6072 MG)
     Route: 042
     Dates: start: 20151016
  75. CAPECITABINE. [Suspect]
     Active Substance: CAPECITABINE
     Dosage: 3500 MILLIGRAM
     Route: 048
     Dates: start: 20170905, end: 20171219
  76. ERIBULIN [Suspect]
     Active Substance: ERIBULIN
     Indication: HER2 POSITIVE BREAST CANCER
     Dosage: UNK (DOSE FORM: 120)
     Route: 065
  77. AMOXICILLIN. [Concomitant]
     Active Substance: AMOXICILLIN
     Dosage: 1500 MILLIGRAM
     Route: 048
     Dates: start: 20160330
  78. AMOXICILLIN. [Concomitant]
     Active Substance: AMOXICILLIN
     Dosage: 1500 MILLIGRAM
     Route: 048
     Dates: start: 20160406
  79. HUMALOG [Concomitant]
     Active Substance: INSULIN LISPRO
     Dosage: 16 DOSAGE FORM, TID
     Route: 058
  80. HUMALOG [Concomitant]
     Active Substance: INSULIN LISPRO
     Dosage: 16 DF, QD (1/DAY)
     Route: 058
  81. HUMALOG [Concomitant]
     Active Substance: INSULIN LISPRO
     Dosage: 3 OT, QD (16 UNIT)
     Route: 058
  82. LEVEMIR [Concomitant]
     Active Substance: INSULIN DETEMIR
     Dosage: UNK, QD
     Route: 058
  83. METFORMIN [Concomitant]
     Active Substance: METFORMIN HYDROCHLORIDE
     Dosage: 500 MILLIGRAM
     Route: 048
  84. LANSOPRAZOLE. [Concomitant]
     Active Substance: LANSOPRAZOLE
     Dosage: 30 MG, QD (1/DAY)
     Route: 048
  85. DOCUSATE SODIUM. [Concomitant]
     Active Substance: DOCUSATE SODIUM
     Dosage: UNK
  86. GLYCEROL [Concomitant]
     Active Substance: GLYCERIN
     Dosage: 4 GRAM
     Route: 048
     Dates: start: 20180511
  87. LACTULOSE. [Concomitant]
     Active Substance: LACTULOSE
     Indication: PRODUCT USED FOR UNKNOWN INDICATION
     Dosage: UNK
  88. ONDANSETRON [Concomitant]
     Active Substance: ONDANSETRON
     Dosage: UNK
  89. TRASTUZUMAB. [Suspect]
     Active Substance: TRASTUZUMAB
     Dosage: 260 MILLIGRAM, Q3W (DOSE FORM: 120)
     Route: 042
     Dates: start: 20150924, end: 20150924
  90. CAPECITABINE. [Suspect]
     Active Substance: CAPECITABINE
     Dosage: 3500 MG (MANUFACTURER UNKNOWN)
     Route: 048
     Dates: start: 20170905
  91. CAPECITABINE. [Suspect]
     Active Substance: CAPECITABINE
     Dosage: 1000 MILLIGRAM (DOSAGE FORM: 82)
     Route: 048
     Dates: start: 20171128, end: 20171219
  92. DOCETAXEL. [Suspect]
     Active Substance: DOCETAXEL
     Dosage: 108 MILLIGRAM
     Route: 042
     Dates: start: 20151016
  93. PERTUZUMAB. [Suspect]
     Active Substance: PERTUZUMAB
     Dosage: 840 MG EVERY 3 WEEKS (DOSE FORM: 230; CUMULATIVE DOSE TO FIRST REACTION: 6361.6665 MG)
     Route: 042
     Dates: start: 20150924, end: 20150924
  94. PERTUZUMAB. [Suspect]
     Active Substance: PERTUZUMAB
     Dosage: 420 MILLIGRAM, Q3W
     Route: 042
     Dates: start: 20151016
  95. PERTUZUMAB. [Suspect]
     Active Substance: PERTUZUMAB
     Dosage: 420 MILLIGRAM, 3XW (DOSE FORM: 120)
     Route: 042
     Dates: start: 20170324
  96. PERTUZUMAB. [Suspect]
     Active Substance: PERTUZUMAB
     Dosage: 840 MG/M2, EVERY 3 WEEKS (DOSE FORM: 230)
     Route: 042
     Dates: start: 20150924, end: 20150924
  97. TRASTUZUMAB EMTANSINE [Suspect]
     Active Substance: ADO-TRASTUZUMAB EMTANSINE
     Indication: HER2 POSITIVE BREAST CANCER
     Dosage: 260 MG, Q3W (EVERY 3 WEEKS) (TARGETED THERAPY) (DOSE FORM: 293)
     Route: 042
     Dates: start: 20150924, end: 20150924
  98. TRASTUZUMAB EMTANSINE [Suspect]
     Active Substance: ADO-TRASTUZUMAB EMTANSINE
     Dosage: 450 MG, EVERY 3 WEEKS, TARGETED THERAPY (DOSE FORM: 230)
     Route: 042
     Dates: start: 20151016
  99. ATEZOLIZUMAB. [Suspect]
     Active Substance: ATEZOLIZUMAB
     Dosage: 1200 MG, 3/WEEK (CV)
     Route: 042
     Dates: start: 20170510, end: 20170628
  100. AMITRIPTYLINE [Concomitant]
     Active Substance: AMITRIPTYLINE
     Dosage: 10 MG, TID (3/DAY) (0.33 DAY)/30 MG, QD (DOSE FORM:245)
     Route: 048
     Dates: start: 201608
  101. HUMALOG [Concomitant]
     Active Substance: INSULIN LISPRO
     Dosage: 48 INTERNATIONAL UNIT, QD
     Route: 058
  102. LEVEMIR [Concomitant]
     Active Substance: INSULIN DETEMIR
     Dosage: 1 UNK, QD (38 UNIT)38 DF, QD (1/DAY)1 DF, QD (38 UNIT)
     Route: 058
  103. LANSOPRAZOLE. [Concomitant]
     Active Substance: LANSOPRAZOLE
     Dosage: 30 MILLIGRAM, QD
     Route: 048
  104. TRASTUZUMAB. [Suspect]
     Active Substance: TRASTUZUMAB
     Indication: HER2 POSITIVE BREAST CANCER
     Dosage: 450 MILLIGRAM, Q3W
     Route: 042
     Dates: start: 20151016
  105. TRASTUZUMAB. [Suspect]
     Active Substance: TRASTUZUMAB
     Dosage: 600 MILLIGRAM (DOSE FORM: INFUSION, SOLUTION)
     Route: 042
     Dates: start: 20150924, end: 20150924
  106. TRASTUZUMAB. [Suspect]
     Active Substance: TRASTUZUMAB
     Dosage: 260 MG, Q2WEEKS
     Route: 042
     Dates: start: 20150924, end: 20150924
  107. DOCETAXEL. [Suspect]
     Active Substance: DOCETAXEL
     Dosage: 108 MG, UNKNOWN (DOSE FORM: 230)
     Route: 042
     Dates: start: 20151016, end: 20160108
  108. PERTUZUMAB. [Suspect]
     Active Substance: PERTUZUMAB
     Indication: HER2 POSITIVE BREAST CANCER
     Dosage: 840 MILLIGRAM, Q3W
     Route: 042
     Dates: start: 20150925, end: 20150925
  109. PERTUZUMAB. [Suspect]
     Active Substance: PERTUZUMAB
     Dosage: 420 MG, EVERY 3 WEEKS (DOSE FORM: 230)
     Route: 042
     Dates: start: 20170324, end: 20170324
  110. TRASTUZUMAB EMTANSINE [Suspect]
     Active Substance: ADO-TRASTUZUMAB EMTANSINE
     Indication: BREAST CANCER METASTATIC
     Dosage: 840 MILLIGRAM, Q3W (Q3W)
     Route: 042
     Dates: start: 20150924, end: 20150924
  111. TRASTUZUMAB EMTANSINE [Suspect]
     Active Substance: ADO-TRASTUZUMAB EMTANSINE
     Dosage: UNK
  112. TRASTUZUMAB EMTANSINE [Suspect]
     Active Substance: ADO-TRASTUZUMAB EMTANSINE
     Dosage: 780 MILLIGRAM, Q3W, 260 MG, 3/WEEK (CV)
     Route: 042
     Dates: start: 20150924, end: 20150924
  113. ATEZOLIZUMAB. [Suspect]
     Active Substance: ATEZOLIZUMAB
     Dosage: 3600 MILLIGRAM, QD
     Route: 042
     Dates: start: 20170510, end: 20170628
  114. ATEZOLIZUMAB. [Suspect]
     Active Substance: ATEZOLIZUMAB
     Dosage: UNK
     Route: 065
  115. NERATINIB [Suspect]
     Active Substance: NERATINIB
     Indication: BREAST CANCER METASTATIC
     Dosage: 240 MG, QD (1/DAY), MANUFACTURER UNKNOWN (CUMULATIVE DOSE: 173040 MG)
     Route: 048
     Dates: start: 20180220, end: 20180717
  116. LOPERAMIDE [Concomitant]
     Active Substance: LOPERAMIDE
     Indication: PRODUCT USED FOR UNKNOWN INDICATION
     Dosage: 2 MILLIGRAM
     Route: 048
     Dates: start: 20150922, end: 20160122
  117. AMOXICILLIN. [Concomitant]
     Active Substance: AMOXICILLIN
     Dosage: 1500 MG (DOSE FORM: 245; CUMULATIVE DOSE: 43437.5 MG)
     Route: 048
     Dates: start: 20160330, end: 20160406
  118. CITALOPRAM [Concomitant]
     Active Substance: CITALOPRAM HYDROBROMIDE
     Dosage: 20 MG, QD (1/DAY)
     Route: 048
  119. HUMALOG [Concomitant]
     Active Substance: INSULIN LISPRO
     Indication: PRODUCT USED FOR UNKNOWN INDICATION
     Dosage: 3 DF, QD (16 UNIT)
     Route: 058
  120. HUMALOG [Concomitant]
     Active Substance: INSULIN LISPRO
     Dosage: 16 DF EVERY 0.33 DAY
     Route: 058
  121. HUMALOG [Concomitant]
     Active Substance: INSULIN LISPRO
     Dosage: 16 INTERNATIONAL UNIT, TID
     Route: 058
  122. METFORMIN [Concomitant]
     Active Substance: METFORMIN HYDROCHLORIDE
     Dosage: 500 MG, BID (2/DAY)
     Route: 048
  123. METFORMIN [Concomitant]
     Active Substance: METFORMIN HYDROCHLORIDE
     Dosage: 500 MG (0.5/DAY)
     Route: 048
  124. HYOSCINE N?BUTYLBROMIDE [Concomitant]
     Active Substance: BUTYLSCOPOLAMINE
     Dosage: 60 MILLIGRAM, QD, 20 MILLIGRAM, TID
     Route: 048
     Dates: start: 20171219, end: 2018
  125. HYOSCINE N?BUTYLBROMIDE [Concomitant]
     Active Substance: BUTYLSCOPOLAMINE
     Dosage: 20 MILLIGRAM, TID
     Route: 048
     Dates: start: 20171219, end: 2018
  126. OMEPRAZOLE. [Concomitant]
     Active Substance: OMEPRAZOLE
     Dosage: UNK

REACTIONS (8)
  - Hot flush [Recovered/Resolved]
  - Off label use [Unknown]
  - Constipation [Recovered/Resolved]
  - Cough [Recovered/Resolved]
  - Neuropathy peripheral [Recovered/Resolved]
  - Aphonia [Recovered/Resolved]
  - Upper respiratory tract infection [Recovered/Resolved]
  - Hyperglycaemia [Recovered/Resolved]

NARRATIVE: CASE EVENT DATE: 201603
